FAERS Safety Report 16200535 (Version 2)
Quarter: 2019Q2

REPORT INFORMATION
  Report Type: Spontaneous
  Country: US (occurrence: US)
  Receive Date: 20190416
  Receipt Date: 20190507
  Transmission Date: 20190711
  Serious: Yes (Other)
  Sender: FDA-Public Use
  Company Number: US-AUROBINDO-AUR-APL-2019-019574

PATIENT

DRUGS (1)
  1. DEXTROAMPHET SACCHARAT, AMPHET ASPARTATE, DEXTROAMPHET SULFATE AND AMPHET SULFAT [Suspect]
     Active Substance: AMPHETAMINE ASPARTATE\AMPHETAMINE SULFATE\DEXTROAMPHETAMINE SACCHARATE\DEXTROAMPHETAMINE SULFATE
     Indication: PRODUCT USED FOR UNKNOWN INDICATION
     Route: 065

REACTIONS (21)
  - Fatigue [Unknown]
  - Product substitution issue [Unknown]
  - Speech disorder [Unknown]
  - Anxiety [Unknown]
  - Restlessness [Unknown]
  - Bruxism [Unknown]
  - Mood altered [Unknown]
  - Drug ineffective [Unknown]
  - Sleep disorder [Unknown]
  - Pain [Unknown]
  - Confusional state [Unknown]
  - Depression [Unknown]
  - Suicidal ideation [Unknown]
  - Hypoaesthesia [Unknown]
  - Feeling abnormal [Unknown]
  - Palpitations [Unknown]
  - Crying [Unknown]
  - Headache [Unknown]
  - Migraine with aura [Unknown]
  - Aggression [Unknown]
  - Apathy [Unknown]
